FAERS Safety Report 4504933-7 (Version None)
Quarter: 2004Q4

REPORT INFORMATION
  Report Type: 
  Country: None (occurrence: None)
  Receive Date: 20041020
  Receipt Date: 20040709
  Transmission Date: 20050328
  Serious: No
  Sender: FDA-Public Use
  Company Number: 2004-07-0463

PATIENT
  Age: 76 Year
  Sex: Male

DRUGS (1)
  1. CLARINEX [Suspect]
     Indication: HYPERSENSITIVITY
     Dosage: QD 2 DAYS ORAL
     Route: 048

REACTIONS (8)
  - ASTHENIA [None]
  - CHILLS [None]
  - DERMATITIS EXFOLIATIVE [None]
  - DIZZINESS [None]
  - FLATULENCE [None]
  - OEDEMA PERIPHERAL [None]
  - PYREXIA [None]
  - SOMNOLENCE [None]
